FAERS Safety Report 13189715 (Version 2)
Quarter: 2017Q1

REPORT INFORMATION
  Report Type: Report from Study
  Country: AT (occurrence: AT)
  Receive Date: 20170206
  Receipt Date: 20170308
  Transmission Date: 20170428
  Serious: Yes (Hospitalization)
  Sender: FDA-Public Use
  Company Number: AT-EISAI MEDICAL RESEARCH-EC-2017-024041

PATIENT
  Age: 63 Year
  Sex: Male
  Weight: 80 kg

DRUGS (13)
  1. SERTRALINE [Concomitant]
     Active Substance: SERTRALINE HYDROCHLORIDE
  2. FYCOMPA [Suspect]
     Active Substance: PERAMPANEL
     Route: 048
     Dates: start: 20161219, end: 20161225
  3. AMLODIPIN [Concomitant]
     Active Substance: AMLODIPINE BESYLATE
  4. FYCOMPA [Suspect]
     Active Substance: PERAMPANEL
     Route: 048
     Dates: start: 20161229, end: 20170101
  5. PANTOLOC [Concomitant]
     Active Substance: PANTOPRAZOLE SODIUM
  6. FYCOMPA [Suspect]
     Active Substance: PERAMPANEL
     Indication: EPILEPSY
     Route: 048
     Dates: start: 20161212, end: 20161218
  7. FYCOMPA [Suspect]
     Active Substance: PERAMPANEL
     Route: 048
     Dates: start: 20161226, end: 20161227
  8. FRISIUM [Concomitant]
     Active Substance: CLOBAZAM
  9. ENALAPRIL [Concomitant]
     Active Substance: ENALAPRIL
  10. MARCOUMAR [Concomitant]
     Active Substance: PHENPROCOUMON
  11. VIMPAT [Concomitant]
     Active Substance: LACOSAMIDE
  12. MEXALEN [Concomitant]
     Active Substance: ACETAMINOPHEN
  13. LEVEBON [Concomitant]

REACTIONS (1)
  - Gait disturbance [Recovered/Resolved]

NARRATIVE: CASE EVENT DATE: 20161224
